FAERS Safety Report 6263636-1 (Version None)
Quarter: 2009Q3

REPORT INFORMATION
  Report Type: 
  Country: None (occurrence: None)
  Receive Date: 20090710
  Receipt Date: 20090701
  Transmission Date: 20100115
  Serious: Yes (Hospitalization)
  Sender: FDA-Public Use
  Company Number: NL-ROCHE-633649

PATIENT
  Weight: 71 kg

DRUGS (6)
  1. CAPECITABINE [Suspect]
     Indication: GASTRIC CANCER
     Route: 065
     Dates: start: 20090422
  2. CISPLATIN [Suspect]
     Indication: GASTRIC CANCER
     Route: 065
  3. EPIRUBICIN [Suspect]
     Indication: GASTRIC CANCER
     Route: 065
  4. PANTOPRAZOLE SODIUM [Concomitant]
     Route: 048
  5. LACTULOSE [Concomitant]
     Route: 048
  6. FENTANYL [Concomitant]
     Route: 062

REACTIONS (4)
  - ABDOMINAL PAIN [None]
  - DIARRHOEA [None]
  - FEBRILE NEUTROPENIA [None]
  - PNEUMATOSIS INTESTINALIS [None]
